FAERS Safety Report 9690755 (Version 1)
Quarter: 2013Q4

REPORT INFORMATION
  Report Type: Spontaneous
  Country: US (occurrence: US)
  Receive Date: 20131115
  Receipt Date: 20131115
  Transmission Date: 20140711
  Serious: No
  Sender: FDA-Public Use
  Company Number: US-BAYER-2013-138973

PATIENT
  Age: 31 Year
  Sex: Female

DRUGS (2)
  1. MIDOL EXTENDED RELIEF CAPLET [Suspect]
     Indication: PAIN
  2. MIDOL PM [Suspect]

REACTIONS (4)
  - Nausea [None]
  - Drug ineffective [None]
  - Somnolence [None]
  - Nausea [None]
